FAERS Safety Report 10059986 (Version 7)
Quarter: 2014Q3

REPORT INFORMATION
  Report Type: Report from Study
  Country: US (occurrence: US)
  Receive Date: 20140404
  Receipt Date: 20140818
  Transmission Date: 20150326
  Serious: Yes (Hospitalization)
  Sender: FDA-Public Use
  Company Number: US-ACTELION-A-US2014-96697

PATIENT
  Age: 52 Year
  Sex: Female

DRUGS (6)
  1. VELETRI [Suspect]
     Active Substance: EPOPROSTENOL
     Dosage: 5 NG/KG, PER MIN
     Route: 042
     Dates: start: 20140322
  2. VELETRI [Suspect]
     Active Substance: EPOPROSTENOL
     Dosage: 4.5 NG/KG, PER MIN
     Route: 042
  3. COUMADIN [Concomitant]
     Active Substance: WARFARIN SODIUM
  4. CHLORAPREP [Concomitant]
     Active Substance: CHLORHEXIDINE GLUCONATE\ISOPROPYL ALCOHOL
  5. VELETRI [Suspect]
     Active Substance: EPOPROSTENOL
     Indication: CONNECTIVE TISSUE DISORDER
     Dosage: 8 NG/KG, PER MIN
     Route: 042
     Dates: start: 20140312
  6. ADCIRCA [Concomitant]
     Active Substance: TADALAFIL

REACTIONS (26)
  - Vision blurred [Recovered/Resolved]
  - Erythema [Unknown]
  - Visual acuity reduced [Unknown]
  - Pain in jaw [Unknown]
  - Peripheral swelling [Unknown]
  - Hypersensitivity [Recovering/Resolving]
  - Myalgia [Unknown]
  - Vomiting [Unknown]
  - Pain in extremity [Recovered/Resolved]
  - Headache [Unknown]
  - Toothache [Unknown]
  - Catheter site erythema [Unknown]
  - Malaise [Unknown]
  - Hypoaesthesia [Unknown]
  - Catheter site inflammation [Unknown]
  - Rash macular [Unknown]
  - Burning sensation [Unknown]
  - Fluid retention [Unknown]
  - Rash [Unknown]
  - Nausea [Unknown]
  - Asthenia [Unknown]
  - Catheter site pruritus [Unknown]
  - Catheter site pain [Unknown]
  - Pruritus [Unknown]
  - Stress [Unknown]
  - Pain [Unknown]

NARRATIVE: CASE EVENT DATE: 20140326
